FAERS Safety Report 7395253-4 (Version None)
Quarter: 2011Q2

REPORT INFORMATION
  Report Type: 
  Country: None (occurrence: None)
  Receive Date: 20110405
  Receipt Date: 20110325
  Transmission Date: 20111010
  Serious: Yes (Hospitalization)
  Sender: FDA-Public Use
  Company Number: IE-BAXTER-2011BH008325

PATIENT
  Age: 47 Year
  Sex: Female

DRUGS (3)
  1. HOLOXAN BAXTER [Suspect]
     Indication: NEOPLASM MALIGNANT
     Route: 065
  2. DOXORUBICIN GENERIC [Suspect]
     Indication: PRODUCT USED FOR UNKNOWN INDICATION
     Route: 065
  3. MESNA [Suspect]
     Indication: PRODUCT USED FOR UNKNOWN INDICATION
     Route: 065

REACTIONS (1)
  - UNRESPONSIVE TO STIMULI [None]
